FAERS Safety Report 25702499 (Version 2)
Quarter: 2025Q3

REPORT INFORMATION
  Report Type: Spontaneous
  Country: US (occurrence: US)
  Receive Date: 20250819
  Receipt Date: 20250822
  Transmission Date: 20251020
  Serious: Yes (Other)
  Sender: PFIZER
  Company Number: US-PFIZER INC-202500165435

PATIENT
  Age: 73 Year
  Sex: Male
  Weight: 104.33 kg

DRUGS (7)
  1. ALDACTONE [Suspect]
     Active Substance: SPIRONOLACTONE
     Indication: Polyuria
  2. ALDACTONE [Suspect]
     Active Substance: SPIRONOLACTONE
  3. ALDACTONE [Suspect]
     Active Substance: SPIRONOLACTONE
     Dosage: EVERY DAY ONE PILL
  4. NOVOLOG [Concomitant]
     Active Substance: INSULIN ASPART
     Indication: Diabetes mellitus
     Dates: start: 202403
  5. JARDIANCE [Concomitant]
     Active Substance: EMPAGLIFLOZIN
     Indication: Renal failure
     Dosage: 25 MG, 1X/DAY
     Route: 048
     Dates: start: 202403
  6. MOUNJARO [Concomitant]
     Active Substance: TIRZEPATIDE
     Indication: Diabetes mellitus
     Dosage: 7.5 ML, WEEKLY
     Dates: start: 202501
  7. METFORMIN [Concomitant]
     Active Substance: METFORMIN HYDROCHLORIDE
     Indication: Diabetes mellitus
     Dosage: 500 MG, 1X/DAY
     Route: 048
     Dates: start: 2015

REACTIONS (4)
  - Erectile dysfunction [Unknown]
  - Sexual dysfunction [Unknown]
  - Weight increased [Unknown]
  - Incorrect dosage administered [Unknown]
